FAERS Safety Report 20557524 (Version 1)
Quarter: 2022Q1

REPORT INFORMATION
  Report Type: Spontaneous
  Country: CN (occurrence: None)
  Receive Date: 20220307
  Receipt Date: 20220307
  Transmission Date: 20220423
  Serious: Yes (Hospitalization, Other)
  Sender: FDA-Public Use
  Company Number: CN-ROCHE-3033112

PATIENT
  Age: 54 Year
  Sex: Male

DRUGS (13)
  1. BEVACIZUMAB [Suspect]
     Active Substance: BEVACIZUMAB
     Indication: Rectal adenocarcinoma
     Dosage: EVERY 3 WEEKS FOR 5 CYCLES
     Route: 041
     Dates: start: 20191016, end: 20200121
  2. BEVACIZUMAB [Suspect]
     Active Substance: BEVACIZUMAB
     Dosage: EVERY 2 WEEKS FOR 8 CYCLES
     Route: 041
     Dates: start: 20200219, end: 20200620
  3. CAPECITABINE [Suspect]
     Active Substance: CAPECITABINE
     Indication: Rectal adenocarcinoma
     Dosage: EVERY 3 WEEKS FOR 5 CYCLES
     Route: 048
     Dates: start: 20191016, end: 20200121
  4. IRINOTECAN [Concomitant]
     Active Substance: IRINOTECAN
     Indication: Rectal adenocarcinoma
     Dosage: EVERY 2 WEEKS FOR 8 CYCLES
     Dates: start: 20200219, end: 20200620
  5. OXALIPLATIN [Concomitant]
     Active Substance: OXALIPLATIN
     Indication: Rectal adenocarcinoma
     Dates: start: 20190402, end: 20190930
  6. LEUCOVORIN CALCIUM [Concomitant]
     Active Substance: LEUCOVORIN CALCIUM
     Indication: Rectal adenocarcinoma
     Dates: start: 20190402, end: 20190930
  7. FLUOROURACIL [Concomitant]
     Active Substance: FLUOROURACIL
     Indication: Rectal adenocarcinoma
     Dates: start: 20190402, end: 20190930
  8. REGORAFENIB [Concomitant]
     Active Substance: REGORAFENIB
     Indication: Rectal adenocarcinoma
     Dosage: 160 MG EVERY DAY ORALLY FOR 3 WEEKS, FOLLOWED BY 1-WEEK BREAK
     Route: 048
     Dates: start: 20200909, end: 20201117
  9. REGORAFENIB [Concomitant]
     Active Substance: REGORAFENIB
     Dosage: 80 MG EVERY DAY ORALLY FOR 3 WEEKS, FOLLOWED BY 1-WEEK BREAK
     Route: 048
     Dates: start: 20201216, end: 20211013
  10. REGORAFENIB [Concomitant]
     Active Substance: REGORAFENIB
     Dosage: 21 CYCLES
     Dates: start: 20201216, end: 20211127
  11. NIVOLUMAB [Concomitant]
     Active Substance: NIVOLUMAB
     Indication: Rectal adenocarcinoma
     Dosage: 19 CYCLES
     Dates: start: 20201216, end: 20211127
  12. NIVOLUMAB [Concomitant]
     Active Substance: NIVOLUMAB
     Dosage: 21 CYCLES
     Dates: start: 20201216, end: 20211127
  13. METFORMIN [Concomitant]
     Active Substance: METFORMIN HYDROCHLORIDE
     Indication: Diabetes mellitus

REACTIONS (3)
  - Diarrhoea [Recovering/Resolving]
  - Myelosuppression [Recovering/Resolving]
  - Drug intolerance [Recovering/Resolving]

NARRATIVE: CASE EVENT DATE: 20200101
